FAERS Safety Report 8450163 (Version 4)
Quarter: 2013Q2

REPORT INFORMATION
  Report Type: Spontaneous
  Country: US (occurrence: US)
  Receive Date: 20120309
  Receipt Date: 20130617
  Transmission Date: 20140414
  Serious: Yes (Other)
  Sender: FDA-Public Use
  Company Number: US-PFIZER INC-2012060194

PATIENT
  Age: 70 Year
  Sex: Female
  Weight: 95.24 kg

DRUGS (8)
  1. LYRICA [Suspect]
     Indication: PAIN IN EXTREMITY
     Dosage: 150 MG, 3X/DAY
     Route: 048
  2. LYRICA [Suspect]
     Indication: LIMB DISCOMFORT
     Dosage: 500 MG, 3X/DAY
     Route: 048
  3. LYRICA [Suspect]
     Dosage: UNK
  4. COUMADIN [Suspect]
     Dosage: UNK
  5. PROZAC [Concomitant]
     Dosage: UNK, TWO TIMES A DAY
  6. CRESTOR [Concomitant]
     Indication: BLOOD CHOLESTEROL INCREASED
     Dosage: UNK, DAILY
  7. HYDROCHLOROTHIAZIDE [Concomitant]
     Dosage: UNK, DAILY
  8. OPTIVITE [Concomitant]
     Indication: MACULAR DEGENERATION
     Dosage: UNK, DAILY

REACTIONS (8)
  - Renal impairment [Recovering/Resolving]
  - Influenza [Unknown]
  - Cerebrovascular accident [Unknown]
  - Myocardial infarction [Unknown]
  - White blood cell count increased [Unknown]
  - Drug level decreased [Unknown]
  - Pain [Unknown]
  - Musculoskeletal stiffness [Unknown]
